FAERS Safety Report 14679126 (Version 1)
Quarter: 2018Q1

REPORT INFORMATION
  Report Type: Spontaneous
  Country: US (occurrence: US)
  Receive Date: 20180323
  Receipt Date: 20180323
  Transmission Date: 20180509
  Serious: Yes (Other)
  Sender: FDA-Public Use
  Company Number: None

PATIENT
  Age: 37 Year
  Sex: Male

DRUGS (1)
  1. KRATOM [Suspect]
     Active Substance: MITRAGYNINE\HERBALS
     Indication: HYPERTENSION

REACTIONS (6)
  - Pallor [None]
  - Loss of consciousness [None]
  - Respiratory rate decreased [None]
  - Blood pressure decreased [None]
  - Intentional product misuse [None]
  - Hyperhidrosis [None]
